FAERS Safety Report 14959632 (Version 1)
Quarter: 2018Q2

REPORT INFORMATION
  Report Type: Spontaneous
  Country: US (occurrence: US)
  Receive Date: 20180531
  Receipt Date: 20180531
  Transmission Date: 20180711
  Serious: No
  Sender: FDA-Public Use
  Company Number: US-PERRIGO-18US001426

PATIENT
  Age: 86 Year
  Sex: Female
  Weight: 65.31 kg

DRUGS (2)
  1. MINOXIDIL. [Suspect]
     Active Substance: MINOXIDIL
     Indication: ALOPECIA
     Dosage: UP TO 1 CAPFUL, 3 TO 4 TIMES WEEKLY
     Route: 061
     Dates: start: 201801
  2. WOMENS ROGAINE [Concomitant]
     Active Substance: MINOXIDIL
     Indication: ALOPECIA
     Dosage: UNK
     Route: 065
     Dates: start: 2017

REACTIONS (2)
  - Incorrect dose administered [Unknown]
  - Inappropriate schedule of drug administration [Unknown]

NARRATIVE: CASE EVENT DATE: 201801
